FAERS Safety Report 8905616 (Version 4)
Quarter: 2013Q4

REPORT INFORMATION
  Report Type: Report from Study
  Country: GB (occurrence: GB)
  Receive Date: 20121113
  Receipt Date: 20131107
  Transmission Date: 20140711
  Serious: Yes (Hospitalization)
  Sender: FDA-Public Use
  Company Number: GB-GLAXOSMITHKLINE-A0987965E

PATIENT
  Age: 53 Year
  Sex: Female
  Weight: 77 kg

DRUGS (14)
  1. OFATUMUMAB [Suspect]
     Indication: DIFFUSE LARGE B-CELL LYMPHOMA RECURRENT
     Route: 042
     Dates: start: 20120711
  2. DEXAMETHASONE [Suspect]
     Indication: DIFFUSE LARGE B-CELL LYMPHOMA RECURRENT
     Dosage: 40MG EVERY 3 WEEKS
     Route: 048
     Dates: start: 20120711
  3. CISPLATIN [Suspect]
     Indication: DIFFUSE LARGE B-CELL LYMPHOMA RECURRENT
     Dosage: 100MGM2 EVERY 3 WEEKS
     Route: 042
     Dates: start: 20120711
  4. CYTARABINE [Suspect]
     Indication: DIFFUSE LARGE B-CELL LYMPHOMA RECURRENT
     Dosage: 4GM2 EVERY 3 WEEKS
     Route: 042
     Dates: start: 20120712
  5. HIBISCRUB [Concomitant]
     Indication: ANTIBIOTIC PROPHYLAXIS
     Dosage: 1APP PER DAY
     Route: 061
     Dates: start: 20121105, end: 20121105
  6. BACTROBAN [Concomitant]
     Indication: ANTIBIOTIC PROPHYLAXIS
     Dosage: 3PUFF PER DAY
     Route: 045
     Dates: start: 20121105, end: 20121105
  7. SENNA [Concomitant]
     Indication: CONSTIPATION
     Dosage: 7.5MG PER DAY
     Route: 048
     Dates: start: 20121103
  8. DOCUSATE SODIUM [Concomitant]
     Indication: CONSTIPATION
     Dosage: 200MG TWICE PER DAY
     Route: 048
     Dates: start: 20121104
  9. LAXIDO [Concomitant]
     Indication: CONSTIPATION
     Dosage: 2TAB TWICE PER DAY
     Route: 048
     Dates: start: 20121105
  10. PREDNISOLONE [Concomitant]
     Indication: DIFFUSE LARGE B-CELL LYMPHOMA
     Dosage: 50MG PER DAY
     Route: 048
     Dates: start: 20121107, end: 20121113
  11. COCODAMOL [Concomitant]
     Indication: PAIN
     Dosage: 2TAB EVERY 4 DAYS
     Route: 048
     Dates: start: 20121108
  12. METOCLOPRAMIDE [Concomitant]
     Indication: NAUSEA
     Dosage: 10MG EVERY 3 DAYS
     Route: 048
     Dates: start: 20121105, end: 20121109
  13. LANSOPRAZOLE [Concomitant]
     Indication: GASTROOESOPHAGEAL REFLUX PROPHYLAXIS
     Dosage: 30MG PER DAY
     Route: 048
  14. PARACETAMOL [Concomitant]
     Indication: NECK PAIN
     Dosage: 1G AS REQUIRED
     Route: 048

REACTIONS (1)
  - Renal impairment [Recovered/Resolved]
